FAERS Safety Report 5479251-3 (Version None)
Quarter: 2007Q4

REPORT INFORMATION
  Report Type: 
  Country: None (occurrence: None)
  Receive Date: 20071008
  Receipt Date: 20070928
  Transmission Date: 20080405
  Serious: Yes (Hospitalization)
  Sender: FDA-Public Use
  Company Number: FR-JNJFOC-20071000385

PATIENT
  Sex: Female

DRUGS (8)
  1. RISPERDAL [Suspect]
     Indication: DELUSION
     Route: 048
  2. EXELON [Suspect]
     Route: 048
  3. EXELON [Suspect]
     Indication: DEMENTIA ALZHEIMER'S TYPE
     Route: 048
  4. ATARAX [Concomitant]
  5. TEMESTA [Concomitant]
  6. ROWASA [Concomitant]
  7. OMEPRAZOLE [Concomitant]
  8. OMEPRAZOLE [Concomitant]

REACTIONS (3)
  - CONVULSION [None]
  - LOSS OF CONSCIOUSNESS [None]
  - TONGUE BITING [None]
